FAERS Safety Report 16653157 (Version 1)
Quarter: 2019Q3

REPORT INFORMATION
  Report Type: Spontaneous
  Country: DE (occurrence: DE)
  Receive Date: 20190731
  Receipt Date: 20190731
  Transmission Date: 20191004
  Serious: Yes (Hospitalization, Other)
  Sender: FDA-Public Use
  Company Number: DE-SA-2019SA204106

PATIENT
  Age: 71 Year
  Sex: Male
  Weight: 71 kg

DRUGS (1)
  1. ENOXAPARIN SODIUM. [Suspect]
     Active Substance: ENOXAPARIN SODIUM
     Indication: INTRACARDIAC THROMBUS
     Dosage: UNK
     Route: 058

REACTIONS (8)
  - Dysphagia [Unknown]
  - Dyspnoea [Unknown]
  - Dysphonia [Unknown]
  - Tachypnoea [Unknown]
  - Obstructive airways disorder [Unknown]
  - Chest discomfort [Unknown]
  - Stridor [Unknown]
  - Atrial fibrillation [Unknown]
